FAERS Safety Report 18409726 (Version 1)
Quarter: 2020Q4

REPORT INFORMATION
  Report Type: Spontaneous
  Country: US (occurrence: US)
  Receive Date: 20201021
  Receipt Date: 20201021
  Transmission Date: 20210114
  Serious: Yes (Life-Threatening, Hospitalization)
  Sender: FDA-Public Use
  Company Number: US-ELI_LILLY_AND_COMPANY-US89061148A

PATIENT
  Age: 12 Year
  Sex: Male

DRUGS (3)
  1. PROZAC [Suspect]
     Active Substance: FLUOXETINE HYDROCHLORIDE
     Indication: PERSISTENT DEPRESSIVE DISORDER
  2. PROZAC [Suspect]
     Active Substance: FLUOXETINE HYDROCHLORIDE
     Indication: OBSESSIVE-COMPULSIVE DISORDER
     Dosage: 20 MG, DAILY
     Route: 048
  3. PROZAC [Suspect]
     Active Substance: FLUOXETINE HYDROCHLORIDE
     Indication: ANXIETY

REACTIONS (11)
  - Abnormal dreams [Unknown]
  - Euphoric mood [Unknown]
  - Depression [Unknown]
  - Obsessive-compulsive disorder [Unknown]
  - Nausea [Unknown]
  - Suicidal ideation [Recovered/Resolved]
  - Agitation [Unknown]
  - Insomnia [Unknown]
  - Serum serotonin decreased [Unknown]
  - Chest pain [Unknown]
  - Anxiety [Unknown]
